FAERS Safety Report 9966588 (Version 2)
Quarter: 2014Q1

REPORT INFORMATION
  Report Type: Report from Study
  Country: PR (occurrence: PR)
  Receive Date: 20140305
  Receipt Date: 20140305
  Transmission Date: 20141002
  Serious: No
  Sender: FDA-Public Use
  Company Number: PR-ABBVIE-13P-131-1114804-00

PATIENT
  Age: 75 Year
  Sex: Female
  Weight: 47.67 kg

DRUGS (9)
  1. HUMIRA [Suspect]
     Indication: RHEUMATOID ARTHRITIS
     Route: 058
     Dates: start: 2004, end: 201304
  2. HUMIRA [Suspect]
     Route: 058
     Dates: start: 201305
  3. GLYNASE [Concomitant]
     Indication: DIABETES MELLITUS
     Route: 048
  4. GLUCOPHAGE [Concomitant]
     Indication: DIABETES MELLITUS
     Route: 048
  5. NEURONTIN [Concomitant]
     Indication: NEUROPATHY PERIPHERAL
     Route: 048
  6. TRIGLIDE [Concomitant]
     Indication: SUPPLEMENTATION THERAPY
     Route: 048
  7. SYNTHROID [Concomitant]
     Indication: THYROID DISORDER
     Route: 048
  8. CARDIZEM [Concomitant]
     Indication: CARDIAC DISORDER
     Route: 048
  9. LANOXIN [Concomitant]
     Indication: CARDIAC DISORDER
     Route: 048

REACTIONS (2)
  - Blood glucose decreased [Recovering/Resolving]
  - Blood glucose increased [Recovered/Resolved]
